FAERS Safety Report 20907886 (Version 3)
Quarter: 2022Q2

REPORT INFORMATION
  Report Type: Report from Study
  Country: KR (occurrence: None)
  Receive Date: 20220602
  Receipt Date: 20220619
  Transmission Date: 20220721
  Serious: Yes (Hospitalization)
  Sender: FDA-Public Use
  Company Number: KR-ROCHE-3108917

PATIENT
  Age: 70 Year
  Sex: Male
  Weight: 56.8 kg

DRUGS (45)
  1. ATEZOLIZUMAB [Suspect]
     Active Substance: ATEZOLIZUMAB
     Indication: Small cell lung cancer extensive stage
     Dosage: ON 16/MAY/2022, MOST RECENT DOSE WAS GIVEN PRIOR TO AE AND SAE.
     Route: 041
     Dates: start: 20220425
  2. CARBOPLATIN [Suspect]
     Active Substance: CARBOPLATIN
     Indication: Small cell lung cancer extensive stage
     Dosage: ON 16/MAY/2022, MOST RECENT DOSE OF CARBOPLATIN WAS GIVEN AS 300.1 MG
     Route: 042
     Dates: start: 20220425
  3. ETOPOSIDE [Suspect]
     Active Substance: ETOPOSIDE
     Indication: Small cell lung cancer extensive stage
     Dosage: ON 18/MAY/2022, MOST RECENT DOSE OF ETOPOSIDE WAS GIVEN PRIOR TO AE AND SAE AS 161 MG.
     Route: 042
     Dates: start: 20220425
  4. ACARBOSE [Concomitant]
     Active Substance: ACARBOSE
     Indication: Diabetes mellitus
     Dates: start: 2008
  5. METFORMIN [Concomitant]
     Active Substance: METFORMIN HYDROCHLORIDE
     Indication: Diabetes mellitus
     Dates: start: 2008
  6. NEBIVOLOL [Concomitant]
     Active Substance: NEBIVOLOL
     Indication: Hypertension
     Dates: start: 2008, end: 20220530
  7. AMLODIPINE [Concomitant]
     Active Substance: AMLODIPINE BESYLATE
     Indication: Hypertension
     Dates: start: 2008, end: 20220530
  8. FIMASARTAN [Concomitant]
     Active Substance: FIMASARTAN
     Indication: Hypertension
     Dates: start: 2008, end: 20220530
  9. FIMASARTAN [Concomitant]
     Active Substance: FIMASARTAN
     Dates: start: 20220603
  10. HUMALOG MIX25 KWIKPEN [Concomitant]
     Indication: Diabetes mellitus
     Dates: start: 2019, end: 20220529
  11. HUMALOG MIX25 KWIKPEN [Concomitant]
     Dates: start: 20220530, end: 20220604
  12. TOLVAPTAN [Concomitant]
     Active Substance: TOLVAPTAN
     Indication: Inappropriate antidiuretic hormone secretion
     Dates: start: 20220418, end: 20220515
  13. TOLVAPTAN [Concomitant]
     Active Substance: TOLVAPTAN
     Dates: start: 20220517, end: 20220608
  14. MEGESTROL [Concomitant]
     Active Substance: MEGESTROL
     Indication: Decreased appetite
     Dates: start: 20220425, end: 20220608
  15. BACLOFEN [Concomitant]
     Active Substance: BACLOFEN
     Indication: Hiccups
     Dates: start: 20220425
  16. MAGNESIUM OXIDE [Concomitant]
     Active Substance: MAGNESIUM OXIDE
     Indication: Constipation
     Dates: start: 20220425
  17. MAGNESIUM OXIDE [Concomitant]
     Active Substance: MAGNESIUM OXIDE
     Dates: start: 20220516, end: 20220604
  18. METOCLOPRAMIDE [Concomitant]
     Active Substance: METOCLOPRAMIDE
     Indication: Nausea
     Dates: start: 20220425
  19. METOCLOPRAMIDE [Concomitant]
     Active Substance: METOCLOPRAMIDE
     Dates: start: 20220517, end: 20220523
  20. METOCLOPRAMIDE [Concomitant]
     Active Substance: METOCLOPRAMIDE
     Dates: start: 20220531, end: 20220604
  21. METOCLOPRAMIDE [Concomitant]
     Active Substance: METOCLOPRAMIDE
     Dates: start: 20220604, end: 20220608
  22. GRANULOCYTE COLONY-STIMULATING FACTOR NOS [Concomitant]
     Active Substance: GRANULOCYTE COLONY-STIMULATING FACTOR NOS
     Indication: Neutrophil count decreased
     Dosage: 150 OTHER
     Route: 058
     Dates: start: 20220502, end: 20220502
  23. GRANULOCYTE COLONY-STIMULATING FACTOR NOS [Concomitant]
     Active Substance: GRANULOCYTE COLONY-STIMULATING FACTOR NOS
     Dosage: 300 OTHER
     Route: 058
     Dates: start: 20220506, end: 20220506
  24. GRANULOCYTE COLONY-STIMULATING FACTOR NOS [Concomitant]
     Active Substance: GRANULOCYTE COLONY-STIMULATING FACTOR NOS
     Route: 058
     Dates: start: 20220519, end: 20220521
  25. DIHYDROCODEINE [Concomitant]
     Active Substance: DIHYDROCODEINE
     Indication: Cough
  26. AMBROXOL [Concomitant]
     Active Substance: AMBROXOL
     Indication: Productive cough
     Dates: start: 20220504, end: 20220506
  27. TRANEXAMIC ACID [Concomitant]
     Active Substance: TRANEXAMIC ACID
     Indication: Haemoptysis
  28. NALOXONE HCL [Concomitant]
     Active Substance: NALOXONE HYDROCHLORIDE
     Indication: Prophylaxis
     Dates: start: 20220506, end: 20220506
  29. PROPACETAMOL HCL [Concomitant]
     Indication: Pyrexia
     Dates: start: 20220506, end: 20220506
  30. KMOXILIN [Concomitant]
     Indication: Infection
  31. LEVOFLOXACIN [Concomitant]
     Active Substance: LEVOFLOXACIN
     Dates: start: 20220506, end: 20220608
  32. BROMHEXINE [Concomitant]
     Active Substance: BROMHEXINE
     Indication: Productive cough
     Dates: start: 20220516, end: 20220608
  33. MAGNESIUM SULFATE [Concomitant]
     Active Substance: MAGNESIUM SULFATE
     Dates: start: 20220516, end: 20220516
  34. SODIUM CHLORIDE [Concomitant]
     Active Substance: SODIUM CHLORIDE
     Indication: Inappropriate antidiuretic hormone secretion
     Dates: start: 20220516, end: 20220517
  35. SODIUM CHLORIDE [Concomitant]
     Active Substance: SODIUM CHLORIDE
     Dates: start: 20220518, end: 20220522
  36. SODIUM CHLORIDE [Concomitant]
     Active Substance: SODIUM CHLORIDE
     Dates: start: 20220530, end: 20220603
  37. AKYNZEO [Concomitant]
     Indication: Vomiting
     Dates: start: 20220516, end: 20220516
  38. DEXAMETHASONE [Concomitant]
     Active Substance: DEXAMETHASONE
     Indication: Vomiting
     Route: 042
     Dates: start: 20220516, end: 20220516
  39. DEXAMETHASONE [Concomitant]
     Active Substance: DEXAMETHASONE
     Route: 048
     Dates: start: 20220517, end: 20220519
  40. SYNACTHEN [Concomitant]
     Dates: start: 20220519, end: 20220519
  41. PREDNISOLONE [Concomitant]
     Active Substance: PREDNISOLONE
     Route: 048
     Dates: start: 20220523, end: 20220608
  42. CHLORHEXIDINE [Concomitant]
     Active Substance: CHLORHEXIDINE
     Dates: start: 20220523
  43. CHLORPHENIRAMINE [Concomitant]
     Active Substance: CHLORPHENIRAMINE
     Dates: start: 20220601, end: 20220601
  44. CHLORPHENIRAMINE [Concomitant]
     Active Substance: CHLORPHENIRAMINE
     Dates: start: 20220603, end: 20220603
  45. APIDRA SOLOSTAR [Concomitant]
     Active Substance: INSULIN GLULISINE
     Indication: Diabetes mellitus
     Dates: start: 20220602, end: 20220604

REACTIONS (2)
  - Hypophagia [Recovered/Resolved]
  - Asthenia [Recovered/Resolved]

NARRATIVE: CASE EVENT DATE: 20220530
